FAERS Safety Report 4451827-1 (Version None)
Quarter: 2004Q3

REPORT INFORMATION
  Report Type: 
  Country: None (occurrence: None)
  Receive Date: 20040915
  Receipt Date: 20040915
  Transmission Date: 20050211
  Serious: Yes (Hospitalization)
  Sender: FDA-Public Use
  Company Number: None

PATIENT
  Age: 60 Year
  Sex: Male
  Weight: 70.7611 kg

DRUGS (17)
  1. DICLOFENAC 25MG EC TAB [Suspect]
     Indication: ARTHRITIS
     Dosage: 50 MG, BID, PO
     Route: 048
     Dates: start: 20031027, end: 20040130
  2. PREDNISONE TAB [Suspect]
     Indication: ARTHRITIS
     Dosage: 20 MG, BID, PO
     Route: 048
     Dates: start: 20030701
  3. ACETAMINOPHEN [Concomitant]
  4. ALENDRONATE SODIUM [Concomitant]
  5. CALCIUM/VITAMIN D [Concomitant]
  6. CYANOCOBALAMIN [Concomitant]
  7. DOCUSATE NA [Concomitant]
  8. FOLIC ACID [Concomitant]
  9. HYDROXYCHLOROQUINE SULFATE [Concomitant]
  10. MORPHINE SULFATE [Concomitant]
  11. OMEPRAZOLE [Concomitant]
  12. OXYCODONE HCL [Concomitant]
  13. PREDNISOLONE [Concomitant]
  14. SERTRALINE HCL [Concomitant]
  15. SILDENAFIL [Concomitant]
  16. SIMETHICONE [Concomitant]
  17. SULFAMETHOXAZOLE + TRIMETHOPRIM [Concomitant]

REACTIONS (3)
  - GASTRIC ULCER [None]
  - LUNG NEOPLASM [None]
  - UPPER GASTROINTESTINAL HAEMORRHAGE [None]
